FAERS Safety Report 10103073 (Version 9)
Quarter: 2015Q3

REPORT INFORMATION
  Report Type: Spontaneous
  Country: US (occurrence: US)
  Receive Date: 20140424
  Receipt Date: 20150730
  Transmission Date: 20151125
  Serious: Yes (Death, Hospitalization, Other)
  Sender: FDA-Public Use
  Company Number: US-GLAXOSMITHKLINE-A1042967A

PATIENT
  Age: 54 Year
  Sex: Male

DRUGS (11)
  1. FLOLAN [Suspect]
     Active Substance: EPOPROSTENOL SODIUM
     Dosage: 42 NG/KG/MIN CONTINUOUS
     Route: 042
  2. FLOLAN [Suspect]
     Active Substance: EPOPROSTENOL SODIUM
     Dosage: 42NG/KG/MINUTE CO, VIAL STRENGTH: 1.5 MG
     Route: 042
  3. FLOLAN [Suspect]
     Active Substance: EPOPROSTENOL SODIUM
     Dosage: UNK
     Dates: start: 19980709
  4. COUMADIN [Concomitant]
     Active Substance: WARFARIN SODIUM
  5. TRACLEER [Concomitant]
     Active Substance: BOSENTAN
  6. FLOLAN [Suspect]
     Active Substance: EPOPROSTENOL SODIUM
     Dosage: 42NG/KG/MINUTE, CO
  7. ADCIRCA [Concomitant]
     Active Substance: TADALAFIL
  8. FLOLAN [Suspect]
     Active Substance: EPOPROSTENOL SODIUM
     Indication: PULMONARY ARTERIAL HYPERTENSION
     Dosage: 48 NG/KG/MIN CONTINUOUSLY (CONCENTRATION 90,000 NG/ML; 1.5 MG VIAL STRENGTH)PUMP RATE 84 ML/DAY
     Route: 042
     Dates: start: 19980709
  9. FLOLAN [Suspect]
     Active Substance: EPOPROSTENOL SODIUM
     Dosage: UNK
     Dates: start: 19980709
  10. FLOLAN [Suspect]
     Active Substance: EPOPROSTENOL SODIUM
     Dosage: 44 DF, UNK
     Dates: start: 20070320
  11. VIAGRA [Concomitant]
     Active Substance: SILDENAFIL CITRATE

REACTIONS (10)
  - Hepatic cirrhosis [Unknown]
  - Hyperthyroidism [Unknown]
  - Death [Fatal]
  - Hospitalisation [Unknown]
  - Pulmonary arterial hypertension [Unknown]
  - Cardiac pacemaker insertion [Unknown]
  - Device occlusion [Unknown]
  - Device related infection [Unknown]
  - Central venous catheterisation [Unknown]
  - Medical device complication [Unknown]

NARRATIVE: CASE EVENT DATE: 2013
